FAERS Safety Report 7552502-7 (Version None)
Quarter: 2011Q2

REPORT INFORMATION
  Report Type: 
  Country: None (occurrence: None)
  Receive Date: 20110616
  Receipt Date: 20110607
  Transmission Date: 20111010
  Serious: Yes (Death, Life-Threatening)
  Sender: FDA-Public Use
  Company Number: JP-CELGENEUS-087-50794-11051232

PATIENT
  Sex: Male

DRUGS (12)
  1. DIFLUCAN [Concomitant]
     Dosage: 1000 MILLIGRAM
     Route: 048
     Dates: start: 20110413, end: 20110503
  2. LEVOFLOXACIN [Concomitant]
     Dosage: 500 MILLIGRAM
     Route: 048
     Dates: start: 20110408, end: 20110415
  3. LEVOFLOXACIN [Concomitant]
     Dosage: 500 MILLIGRAM
     Route: 048
     Dates: start: 20110430, end: 20110503
  4. ADONA [Concomitant]
     Dosage: 90 MILLIGRAM
     Route: 048
     Dates: start: 20110328, end: 20110503
  5. AMARYL [Concomitant]
     Dosage: 2 MILLIGRAM
     Route: 048
     Dates: start: 20110328, end: 20110503
  6. VIDAZA [Suspect]
     Dosage: 75 MILLIGRAM/SQ. METER
     Route: 058
     Dates: start: 20110328, end: 20110401
  7. LENDORMIN [Concomitant]
     Dosage: .25 MILLIGRAM
     Route: 048
     Dates: start: 20110328, end: 20110503
  8. MEROPENEM [Concomitant]
     Dosage: 1 GRAM
     Route: 065
     Dates: start: 20110319, end: 20110402
  9. MEROPENEM [Concomitant]
     Dosage: 1 GRAM
     Route: 065
     Dates: start: 20110416, end: 20110429
  10. TRAMADOL HYDROCHLORIDE [Concomitant]
     Dosage: 50 MILLIGRAM
     Route: 048
     Dates: start: 20110426, end: 20110502
  11. MAGMITT [Concomitant]
     Dosage: 990 MILLIGRAM
     Route: 048
     Dates: start: 20110328, end: 20110503
  12. SOLDACTONE [Concomitant]
     Dosage: 50 MILLIGRAM
     Route: 065
     Dates: start: 20110427, end: 20110504

REACTIONS (3)
  - NEUTROPHIL COUNT DECREASED [None]
  - SUBARACHNOID HAEMORRHAGE [None]
  - INJECTION SITE REACTION [None]
